FAERS Safety Report 10369585 (Version 2)
Quarter: 2015Q1

REPORT INFORMATION
  Report Type: Spontaneous
  Country: US (occurrence: US)
  Receive Date: 20140807
  Receipt Date: 20150209
  Transmission Date: 20150720
  Serious: No
  Sender: FDA-Public Use
  Company Number: US-AMGEN-USASP2014023812

PATIENT
  Age: 65 Year
  Sex: Female

DRUGS (13)
  1. HERCEPTIN [Suspect]
     Active Substance: TRASTUZUMAB
     Indication: BREAST CANCER
     Dosage: 1000 MG, UNK
     Route: 042
     Dates: start: 20121218
  2. HERCEPTIN [Suspect]
     Active Substance: TRASTUZUMAB
     Dosage: 726 MG, UNK
     Route: 042
     Dates: start: 20130108
  3. FILGRASTIM [Suspect]
     Active Substance: FILGRASTIM
     Indication: PRODUCT USED FOR UNKNOWN INDICATION
     Dosage: UNK
     Route: 065
  4. ATIVAN [Concomitant]
     Active Substance: LORAZEPAM
     Dosage: 0.5 MG, UNK
     Route: 042
     Dates: start: 20130108
  5. NORMAL SALINE [Concomitant]
     Active Substance: SODIUM CHLORIDE
     Dosage: 10 ML, UNK
     Route: 042
  6. CARBOPLATIN. [Concomitant]
     Active Substance: CARBOPLATIN
     Dosage: 900 MG, UNK
     Route: 042
     Dates: start: 20130108
  7. BENADRYL [Concomitant]
     Active Substance: DIPHENHYDRAMINE HYDROCHLORIDE
     Dosage: 25 MG, UNK
     Route: 042
     Dates: start: 20130108
  8. PEGFILGRASTIM [Suspect]
     Active Substance: PEGFILGRASTIM
     Indication: PRODUCT USED FOR UNKNOWN INDICATION
     Dosage: 6 MG, UNK
     Route: 058
     Dates: start: 20121219
  9. DEXAMETHASONE. [Concomitant]
     Active Substance: DEXAMETHASONE
     Dosage: 10 MG, UNK
     Route: 042
     Dates: start: 20130108
  10. NORMAL SALINE [Concomitant]
     Active Substance: SODIUM CHLORIDE
     Dosage: 250 UNK, UNK
     Route: 042
  11. EMEND [Concomitant]
     Active Substance: APREPITANT
     Dosage: 150 MG, UNK
     Route: 042
  12. TAXOTERE [Concomitant]
     Active Substance: DOCETAXEL
     Dosage: 170 MG, UNK
     Route: 042
     Dates: start: 20130108
  13. ALOXI [Concomitant]
     Active Substance: PALONOSETRON HYDROCHLORIDE
     Dosage: 0.25 MG, UNK
     Route: 042

REACTIONS (2)
  - Nausea [Unknown]
  - Injection site reaction [Unknown]
